FAERS Safety Report 5828711-1 (Version None)
Quarter: 2008Q3

REPORT INFORMATION
  Report Type: 
  Country: None (occurrence: None)
  Receive Date: 20080729
  Receipt Date: 20080729
  Transmission Date: 20090109
  Serious: Yes (Other)
  Sender: FDA-Public Use
  Company Number: None

PATIENT
  Sex: Female
  Weight: 72.5755 kg

DRUGS (1)
  1. CIPROFLOXACIN [Suspect]
     Indication: INFECTION
     Dosage: 1 - 500 MG  TWICE DAILY PO (1 DOSE)
     Route: 048
     Dates: start: 20080728, end: 20080728

REACTIONS (2)
  - SWELLING [None]
  - TENDON DISORDER [None]
